FAERS Safety Report 14957809 (Version 4)
Quarter: 2018Q3

REPORT INFORMATION
  Report Type: Spontaneous
  Country: JP (occurrence: JP)
  Receive Date: 20180531
  Receipt Date: 20180704
  Transmission Date: 20181010
  Serious: Yes (Hospitalization)
  Sender: FDA-Public Use
  Company Number: JP-ASTRAZENECA-2018SE70337

PATIENT
  Age: 79 Year
  Sex: Female
  Weight: 37 kg

DRUGS (2)
  1. HIRUDOID [Concomitant]
     Active Substance: GLYCOSAMINOGLYCANS
     Dosage: DOSE UNKNOWN
     Route: 065
  2. TAGRISSO [Suspect]
     Active Substance: OSIMERTINIB
     Indication: NON-SMALL CELL LUNG CANCER
     Route: 048
     Dates: start: 20170508, end: 20180417

REACTIONS (7)
  - Atrial septal defect acquired [Recovered/Resolved]
  - Cardiomegaly [Unknown]
  - Cardiac failure congestive [Recovering/Resolving]
  - Pleural effusion [Recovered/Resolved]
  - Mitral valve incompetence [Not Recovered/Not Resolved]
  - Drug dose omission [Unknown]
  - Arrhythmia [Unknown]

NARRATIVE: CASE EVENT DATE: 201804
